FAERS Safety Report 5792649-9 (Version None)
Quarter: 2008Q2

REPORT INFORMATION
  Report Type: 
  Country: None (occurrence: None)
  Receive Date: 20080624
  Receipt Date: 20080609
  Transmission Date: 20081010
  Serious: Yes (Other)
  Sender: FDA-Public Use
  Company Number: 2008S1009911

PATIENT
  Age: 25 Year
  Sex: Female

DRUGS (2)
  1. CITALOPRAM HYDROBROMIDE [Suspect]
     Indication: DRUG USE FOR UNKNOWN INDICATION
     Dosage: 40 MG;
     Dates: start: 20080509, end: 20080522
  2. TRIMETHOPRIM [Concomitant]

REACTIONS (2)
  - FEELING ABNORMAL [None]
  - HALLUCINATIONS, MIXED [None]
